FAERS Safety Report 17622770 (Version 13)
Quarter: 2022Q1

REPORT INFORMATION
  Report Type: Report from Study
  Country: JP (occurrence: JP)
  Receive Date: 20200403
  Receipt Date: 20220328
  Transmission Date: 20220423
  Serious: Yes (Hospitalization)
  Sender: FDA-Public Use
  Company Number: JP-DSJP-DSJ-2020-110375

PATIENT
  Age: 72 Year
  Sex: Female
  Weight: 72 kg

DRUGS (92)
  1. TRASTUZUMAB DERUXTECAN [Suspect]
     Active Substance: TRASTUZUMAB DERUXTECAN
     Indication: HER2 positive breast cancer
     Dosage: 5.4 MG/KG, ONCE EVERY 3 WK
     Route: 041
     Dates: start: 20190404, end: 20190606
  2. TRASTUZUMAB DERUXTECAN [Suspect]
     Active Substance: TRASTUZUMAB DERUXTECAN
     Dosage: 4.4 MG/KG, ONCE EVERY 3 WK
     Route: 041
     Dates: start: 20190718, end: 20190829
  3. TRASTUZUMAB DERUXTECAN [Suspect]
     Active Substance: TRASTUZUMAB DERUXTECAN
     Dosage: 4.4 MG/KG, ONCE EVERY 3 WK
     Route: 041
     Dates: start: 20191001, end: 20191001
  4. TRASTUZUMAB DERUXTECAN [Suspect]
     Active Substance: TRASTUZUMAB DERUXTECAN
     Dosage: 4.4 MG/KG, ONCE EVERY 3 WK
     Route: 041
     Dates: start: 20191030, end: 20191030
  5. TRASTUZUMAB DERUXTECAN [Suspect]
     Active Substance: TRASTUZUMAB DERUXTECAN
     Dosage: 4.4 MG/KG, ONCE EVERY 3 WK
     Route: 041
     Dates: start: 20191128, end: 20200220
  6. TRASTUZUMAB DERUXTECAN [Suspect]
     Active Substance: TRASTUZUMAB DERUXTECAN
     Dosage: 3.2 MG/KG, ONCE EVERY 3 WK
     Route: 041
     Dates: start: 20200312, end: 20200423
  7. TRASTUZUMAB DERUXTECAN [Suspect]
     Active Substance: TRASTUZUMAB DERUXTECAN
     Dosage: 3.2 MG/KG, ONCE EVERY 3 WK
     Route: 041
     Dates: start: 20200526, end: 20200526
  8. FESOTERODINE FUMARATE [Concomitant]
     Active Substance: FESOTERODINE FUMARATE
     Indication: Hypertonic bladder
     Dosage: 4 MG, QD
     Route: 048
     Dates: start: 20171111, end: 201905
  9. METRONIDAZOLE [Concomitant]
     Active Substance: METRONIDAZOLE
     Indication: Prophylaxis
     Dosage: PROPER QUANTITIY, QD
     Route: 061
     Dates: start: 20190129, end: 201903
  10. SODIUM HYALURONATE [Concomitant]
     Active Substance: HYALURONATE SODIUM
     Indication: Dry eye
     Dosage: 1 DROP, 5-6 TIMES PER DAY
     Route: 031
     Dates: start: 20190401
  11. LOXOPROFEN SODIUM DIHYDRATE [Concomitant]
     Active Substance: LOXOPROFEN SODIUM DIHYDRATE
     Indication: Cancer pain
     Dosage: 60 MG, AS NEEDED
     Route: 048
     Dates: start: 2016
  12. REBAMIPIDE [Concomitant]
     Active Substance: REBAMIPIDE
     Indication: Gastritis prophylaxis
     Dosage: 100 MG, AS NEEDED
     Route: 048
     Dates: start: 2016
  13. MAGNESIUM OXIDE [Concomitant]
     Active Substance: MAGNESIUM OXIDE
     Indication: Constipation
     Dosage: 330 MG, AS NEEDED
     Route: 048
     Dates: start: 2016
  14. SODIUM FERROUS CITRATE [Concomitant]
     Active Substance: SODIUM FERROUS CITRATE
     Indication: Anaemia
     Dosage: 100 MG, QD
     Route: 048
     Dates: start: 20190313, end: 20190717
  15. SODIUM FERROUS CITRATE [Concomitant]
     Active Substance: SODIUM FERROUS CITRATE
     Dosage: 100 MG, QD
     Route: 048
     Dates: start: 20190622, end: 20190717
  16. WHITE PETROLATUM [Concomitant]
     Active Substance: PETROLATUM
     Indication: Prophylaxis
     Dosage: PROPER QUANTITIY, QD
     Route: 061
     Dates: start: 20190312
  17. V ROHTO [Concomitant]
     Indication: Subconjunctival injection procedure
     Dosage: 1 DROP, 5-6 TIMES PER DAY
     Route: 031
     Dates: start: 20190321, end: 20190401
  18. BETAMETHASONE VALERATE [Concomitant]
     Active Substance: BETAMETHASONE VALERATE
     Indication: Eczema
     Dosage: PROPER QUANTITIY, AS NEEDED
     Route: 061
     Dates: start: 20190411, end: 20190606
  19. BORRAGINOL A                       /01370101/ [Concomitant]
     Indication: Haemorrhoids
     Dosage: 1 DF, AS NEEDED
     Route: 054
     Dates: start: 20190411, end: 20190411
  20. ENSURE                             /07499801/ [Concomitant]
     Indication: Hypoalbuminaemia
     Dosage: 0.25 L, QD
     Route: 048
     Dates: start: 20190418, end: 201905
  21. ACETAMINOPHEN [Concomitant]
     Active Substance: ACETAMINOPHEN
     Indication: Cystitis haemorrhagic
     Dosage: 1000 MG, AS NEEDED
     Route: 042
     Dates: start: 20190608, end: 20190611
  22. ACETAMINOPHEN [Concomitant]
     Active Substance: ACETAMINOPHEN
     Indication: Cancer pain
     Dosage: 1000 MG, QD
     Route: 042
     Dates: start: 20200229, end: 20200229
  23. ACETAMINOPHEN [Concomitant]
     Active Substance: ACETAMINOPHEN
     Dosage: 1000 MG, QD
     Route: 042
     Dates: start: 20200327, end: 20200327
  24. METOCLOPRAMIDE HYDROCHLORIDE [Concomitant]
     Active Substance: METOCLOPRAMIDE HYDROCHLORIDE
     Indication: Anaemia
     Dosage: 10 MG, AS NEEDED
     Route: 042
     Dates: start: 20190607, end: 20190609
  25. SODIUM CHLORIDE [Concomitant]
     Active Substance: SODIUM CHLORIDE
     Indication: Cystitis haemorrhagic
     Dosage: 1 L, QD
     Route: 042
     Dates: start: 20190607, end: 20190614
  26. CALCIUM CHLORIDE\POTASSIUM CHLORIDE\SODIUM CHLORIDE\SODIUM LACTATE [Concomitant]
     Active Substance: CALCIUM CHLORIDE\POTASSIUM CHLORIDE\SODIUM CHLORIDE\SODIUM LACTATE
     Indication: Cystitis haemorrhagic
     Dosage: 1 L, AS NEEDED
     Route: 042
     Dates: start: 20190607, end: 20190611
  27. CALCIUM CHLORIDE\POTASSIUM CHLORIDE\SODIUM CHLORIDE\SODIUM LACTATE [Concomitant]
     Active Substance: CALCIUM CHLORIDE\POTASSIUM CHLORIDE\SODIUM CHLORIDE\SODIUM LACTATE
     Indication: Fluid replacement
     Dosage: 1 L, QD
     Route: 042
     Dates: start: 20200229, end: 20200301
  28. CALCIUM CHLORIDE\POTASSIUM CHLORIDE\SODIUM CHLORIDE\SODIUM LACTATE [Concomitant]
     Active Substance: CALCIUM CHLORIDE\POTASSIUM CHLORIDE\SODIUM CHLORIDE\SODIUM LACTATE
     Dosage: 1000 ML, QD
     Route: 042
     Dates: start: 20200327, end: 20200329
  29. CALCIUM CHLORIDE\POTASSIUM CHLORIDE\SODIUM CHLORIDE\SODIUM LACTATE [Concomitant]
     Active Substance: CALCIUM CHLORIDE\POTASSIUM CHLORIDE\SODIUM CHLORIDE\SODIUM LACTATE
     Dosage: 1 L, SINGLE
     Route: 042
     Dates: start: 20200424, end: 20200424
  30. CARBAZOCHROME SODIUM SULFONATE [Concomitant]
     Active Substance: CARBAZOCHROME SODIUM SULFONATE
     Indication: Cystitis haemorrhagic
     Dosage: 50 MG, QD
     Route: 042
     Dates: start: 20190607, end: 20190613
  31. CARBAZOCHROME SODIUM SULFONATE [Concomitant]
     Active Substance: CARBAZOCHROME SODIUM SULFONATE
     Indication: Haemorrhoidal haemorrhage
     Dosage: 50 MG, QD
     Route: 042
     Dates: start: 20200228, end: 20200301
  32. CARBAZOCHROME SODIUM SULFONATE [Concomitant]
     Active Substance: CARBAZOCHROME SODIUM SULFONATE
     Dosage: 50 MG, QD
     Route: 042
     Dates: start: 20200327, end: 20200327
  33. CARBAZOCHROME SODIUM SULFONATE [Concomitant]
     Active Substance: CARBAZOCHROME SODIUM SULFONATE
     Dosage: 50 MG, BID
     Route: 042
     Dates: start: 20200328, end: 20200331
  34. CARBAZOCHROME SODIUM SULFONATE [Concomitant]
     Active Substance: CARBAZOCHROME SODIUM SULFONATE
     Dosage: 50 MG, BID
     Route: 042
     Dates: start: 20200424, end: 20200425
  35. CARBAZOCHROME SODIUM SULFONATE [Concomitant]
     Active Substance: CARBAZOCHROME SODIUM SULFONATE
     Dosage: 50 MG, SINGLE
     Route: 042
     Dates: start: 20200513, end: 20200513
  36. TRANEXAMIC ACID [Concomitant]
     Active Substance: TRANEXAMIC ACID
     Indication: Cystitis haemorrhagic
     Dosage: 0.01 L, QD
     Route: 042
     Dates: start: 20190607, end: 20190613
  37. TRANEXAMIC ACID [Concomitant]
     Active Substance: TRANEXAMIC ACID
     Indication: Haemorrhoidal haemorrhage
     Dosage: 0.01 L, QD
     Route: 042
     Dates: start: 20200228, end: 20200301
  38. TRANEXAMIC ACID [Concomitant]
     Active Substance: TRANEXAMIC ACID
     Dosage: 10 ML, QD
     Route: 042
     Dates: start: 20200327, end: 20200327
  39. TRANEXAMIC ACID [Concomitant]
     Active Substance: TRANEXAMIC ACID
     Dosage: 10 ML, BID
     Route: 042
     Dates: start: 20200328, end: 20200331
  40. TRANEXAMIC ACID [Concomitant]
     Active Substance: TRANEXAMIC ACID
     Dosage: 0.01 L, BID
     Route: 042
     Dates: start: 20200424, end: 20200425
  41. TRANEXAMIC ACID [Concomitant]
     Active Substance: TRANEXAMIC ACID
     Dosage: 0.01 L, BID
     Route: 042
     Dates: start: 20200513, end: 20200513
  42. LEVOFLOXACIN HEMIHYDRATE [Concomitant]
     Active Substance: LEVOFLOXACIN
     Indication: Pyelonephritis
     Dosage: 500 MG, AS NEEDED
     Route: 048
     Dates: start: 20190607, end: 20190613
  43. SOLDEM 3A [Concomitant]
     Active Substance: CARBOHYDRATES\POTASSIUM CHLORIDE\SODIUM CHLORIDE\SODIUM LACTATE
     Indication: Cystitis haemorrhagic
     Dosage: 0.1 L, QD
     Route: 042
     Dates: start: 20190608, end: 20190614
  44. SOLDEM 3A [Concomitant]
     Active Substance: CARBOHYDRATES\POTASSIUM CHLORIDE\SODIUM CHLORIDE\SODIUM LACTATE
     Indication: Fluid replacement
     Dosage: 0.5 L, QD
     Route: 042
     Dates: start: 20200513, end: 20200514
  45. CEFEPIME HYDROCHLORIDE [Concomitant]
     Active Substance: CEFEPIME HYDROCHLORIDE
     Indication: Pyelonephritis
     Dosage: 1 G, QD
     Route: 042
     Dates: start: 20190608, end: 20190616
  46. ACETAMINOPHEN [Concomitant]
     Active Substance: ACETAMINOPHEN
     Indication: Cystitis haemorrhagic
     Dosage: 600 MG, AS NEEDED
     Route: 048
     Dates: start: 20190610, end: 20190616
  47. ACETAMINOPHEN [Concomitant]
     Active Substance: ACETAMINOPHEN
     Indication: Cancer pain
     Dosage: 600 MG, AS NEEDED
     Route: 048
     Dates: start: 20190622
  48. ALBUMIN HUMAN [Concomitant]
     Active Substance: ALBUMIN HUMAN
     Indication: Hypoalbuminaemia
     Dosage: 0.1 L, SINGLE
     Route: 042
     Dates: start: 20190610, end: 20190610
  49. FUROSEMIDE [Concomitant]
     Active Substance: FUROSEMIDE
     Indication: Transurethral bladder resection
     Dosage: 10 MG, SINGLE
     Route: 042
     Dates: start: 20190610, end: 20190610
  50. SENOSIDE [Concomitant]
     Indication: Transurethral bladder resection
     Dosage: 12 MG, AS NEEDED
     Route: 048
     Dates: start: 20190610, end: 20190610
  51. GLYCERIN                           /00200601/ [Concomitant]
     Indication: Transurethral bladder resection
     Dosage: 0.06 L, SINGLE
     Route: 054
     Dates: start: 20190610, end: 20190610
  52. PLATELETS [Concomitant]
     Active Substance: HUMAN PLATELET, ALLOGENIC
     Indication: Platelet count decreased
     Dosage: 1 IU, AS NEEDED
     Route: 042
     Dates: start: 20190610, end: 20190614
  53. HUMAN RED BLOOD CELL [Concomitant]
     Active Substance: HUMAN RED BLOOD CELL
     Indication: Anaemia
     Dosage: 2 IU, AS NEEDED
     Route: 042
     Dates: start: 20190608, end: 20190611
  54. HUMAN RED BLOOD CELL [Concomitant]
     Active Substance: HUMAN RED BLOOD CELL
     Indication: Anaemia postoperative
     Dosage: 2 IU, SINGLE
     Route: 042
     Dates: start: 20190622, end: 20190622
  55. HUMAN RED BLOOD CELL [Concomitant]
     Active Substance: HUMAN RED BLOOD CELL
     Indication: Haemorrhoidal haemorrhage
     Dosage: 4 IU, SINGLE
     Route: 042
     Dates: start: 20200328, end: 20200328
  56. HUMAN RED BLOOD CELL [Concomitant]
     Active Substance: HUMAN RED BLOOD CELL
     Dosage: 2 IU, SINGLE
     Route: 042
     Dates: start: 20200513, end: 20200513
  57. HUMAN RED BLOOD CELL [Concomitant]
     Active Substance: HUMAN RED BLOOD CELL
     Dosage: 2 IU, SINGLE
     Route: 042
     Dates: start: 20200518, end: 20200518
  58. SUGAMMADEX SODIUM [Concomitant]
     Active Substance: SUGAMMADEX SODIUM
     Indication: Cystitis haemorrhagic
     Dosage: 200 MG, SINGLE
     Route: 042
     Dates: start: 20190611, end: 20190611
  59. INDIGOCARMINE DAIICHI [Concomitant]
     Indication: Cystitis haemorrhagic
     Dosage: 1 DF, SINGLE
     Route: 042
     Dates: start: 20190611, end: 20190611
  60. CALCIUM CHLORIDE\MAGNESIUM CHLORIDE\POTASSIUM CHLORIDE\SODIUM ACETATE\ [Concomitant]
     Active Substance: CALCIUM CHLORIDE\MAGNESIUM CHLORIDE\POTASSIUM CHLORIDE\SODIUM ACETATE\SODIUM CHLORIDE
     Indication: Cystitis haemorrhagic
     Dosage: 0.5 L, SINGLE
     Route: 042
     Dates: start: 20190611, end: 20190611
  61. CALCIUM GLUCONATE\DEXTROSE\MAGNESIUM CHLORIDE\POTASSIUM CHLORIDE\SODIU [Concomitant]
     Active Substance: CALCIUM GLUCONATE\DEXTROSE\MAGNESIUM CHLORIDE\POTASSIUM CHLORIDE\SODIUM ACETATE\SODIUM CHLORIDE\TRIS
     Indication: Cystitis haemorrhagic
     Dosage: 0.5 L, SINGLE
     Route: 042
     Dates: start: 20190611, end: 20190611
  62. FENTANYL CITRATE [Concomitant]
     Active Substance: FENTANYL CITRATE
     Indication: Cystitis haemorrhagic
     Dosage: 100 UG, SINGLE
     Route: 042
     Dates: start: 20190611, end: 20190611
  63. REMIFENTANIL HYDROCHLORIDE [Concomitant]
     Active Substance: REMIFENTANIL HYDROCHLORIDE
     Indication: Cystitis haemorrhagic
     Dosage: 1.68 ML, SINGLE
     Route: 042
     Dates: start: 20190611, end: 20190611
  64. ROCURONIUM BROMIDE [Concomitant]
     Active Substance: ROCURONIUM BROMIDE
     Indication: Cystitis haemorrhagic
     Dosage: 30 MG, SINGLE
     Route: 042
     Dates: start: 20190611, end: 20190611
  65. PHENYLEPHRINE HYDROCHLORIDE [Concomitant]
     Active Substance: PHENYLEPHRINE HYDROCHLORIDE
     Indication: Cystitis haemorrhagic
     Dosage: 0.4 MG, SINGLE
     Route: 042
     Dates: start: 20190611, end: 20190611
  66. HYDROXYZINE HYDROCHLORIDE [Concomitant]
     Active Substance: HYDROXYZINE HYDROCHLORIDE
     Indication: Anaemia
     Dosage: 25 MG, AS NEEDED
     Route: 042
     Dates: start: 20190607, end: 20190609
  67. FILGRASTIM [Concomitant]
     Active Substance: FILGRASTIM
     Indication: Neutrophil count decreased
     Dosage: 75 UG, QD
     Route: 058
     Dates: start: 20190614, end: 20190619
  68. PENTAZOCINE [Concomitant]
     Active Substance: PENTAZOCINE
     Indication: Cystitis haemorrhagic
     Dosage: 15 MG, SINGLE
     Route: 042
     Dates: start: 20190605, end: 20190605
  69. BETAMETHASONE VALERATE [Concomitant]
     Active Substance: BETAMETHASONE VALERATE
     Indication: Cystitis haemorrhagic
     Dosage: 1 DF, SINGLE
     Route: 026
     Dates: start: 20190605, end: 20190605
  70. CEFOTIAM HYDROCHLORIDE [Concomitant]
     Active Substance: CEFOTIAM HYDROCHLORIDE
     Indication: Antibiotic therapy
     Dosage: 5 G, QD
     Route: 042
     Dates: start: 20190621, end: 20190622
  71. SOLYUGEN [Concomitant]
     Indication: Fluid replacement
     Dosage: 2.5 L, QD
     Route: 042
     Dates: start: 20190621, end: 20190622
  72. VOLUVEN                            /00375601/ [Concomitant]
     Indication: Surgery
     Dosage: 0.4 L, QD
     Route: 042
     Dates: start: 20190621, end: 201906
  73. BUPIVACAINE HYDROCHLORIDE [Concomitant]
     Active Substance: BUPIVACAINE HYDROCHLORIDE
     Indication: Hip fracture
     Dosage: 2.6 ML, SINGLE
     Route: 042
     Dates: start: 20190621, end: 20190621
  74. EPHEDRINE HYDROCHLORIDE [Concomitant]
     Active Substance: EPHEDRINE HYDROCHLORIDE
     Indication: Hip fracture
     Dosage: 2 MG, SINGLE
     Route: 042
     Dates: start: 20190621, end: 20190621
  75. IOPAMIDOL [Concomitant]
     Active Substance: IOPAMIDOL
     Indication: Scan with contrast
     Dosage: 0.1 L, PER 6 WEEKS
     Route: 042
     Dates: start: 20190328, end: 20200602
  76. VALSARTAN [Concomitant]
     Active Substance: VALSARTAN
     Indication: Hypertension
     Dosage: 80 MG, QD
     Route: 048
     Dates: start: 20191223, end: 20200131
  77. CARBAZOCHROME SODIUM SULFONATE [Concomitant]
     Active Substance: CARBAZOCHROME SODIUM SULFONATE
     Indication: Haemorrhage prophylaxis
     Dosage: 30 MG, TID
     Route: 048
     Dates: start: 20200120
  78. XYLOCAINE                          /00033401/ [Concomitant]
     Indication: Cystitis haemorrhagic
     Dosage: 0.03 L, SINGLE
     Route: 042
     Dates: start: 20200302, end: 20200302
  79. POVIDONE-IODINE W/SUCROSE [Concomitant]
     Indication: Skin ulcer
     Dosage: PROPER QUANTITY, AS NEEDED
     Route: 061
     Dates: start: 20200312
  80. POVIDONE-IODINE W/SUCROSE [Concomitant]
     Indication: Prophylaxis
  81. DIFLUPREDNATE [Concomitant]
     Active Substance: DIFLUPREDNATE
     Indication: Skin ulcer
     Dosage: PROPER QUANTITY, AS NEEDED
     Route: 061
     Dates: start: 20200312
  82. DIFLUPREDNATE [Concomitant]
     Active Substance: DIFLUPREDNATE
     Indication: Prophylaxis
  83. TRANEXAMIC ACID [Concomitant]
     Active Substance: TRANEXAMIC ACID
     Indication: Haemorrhage prophylaxis
     Dosage: 250 MG, TID
     Route: 048
     Dates: start: 20200120
  84. CIPROFLOXACIN HYDROCHLORIDE [Concomitant]
     Active Substance: CIPROFLOXACIN HYDROCHLORIDE
     Indication: Cystitis haemorrhagic
     Dosage: 200 MG, BID
     Route: 048
     Dates: start: 20200302, end: 20200305
  85. CIPROFLOXACIN HYDROCHLORIDE [Concomitant]
     Active Substance: CIPROFLOXACIN HYDROCHLORIDE
     Indication: Haemorrhoidal haemorrhage
     Dosage: 200 MG, BID
     Route: 048
     Dates: start: 20200327, end: 20200401
  86. DEXTROSE [Concomitant]
     Active Substance: DEXTROSE
     Indication: Anaemia prophylaxis
     Dosage: 50 ML, AS NEEDED
     Route: 042
     Dates: start: 20200330, end: 20200402
  87. FULID [Concomitant]
     Indication: Fluid replacement
     Dosage: 1000 ML, QD
     Route: 042
     Dates: start: 20200330, end: 20200331
  88. SODIUM PICOSULFATE [Concomitant]
     Active Substance: SODIUM PICOSULFATE
     Indication: Product used for unknown indication
     Dosage: PROPER QUANTITY, AS NEEDED
     Route: 048
     Dates: start: 20200330, end: 20200330
  89. MOVIPREP                           /06224801/ [Concomitant]
     Indication: Product used for unknown indication
     Dosage: PROPER QUANTITY, AS NEEDED
     Route: 048
     Dates: start: 20200330, end: 20200330
  90. METOCLOPRAMIDE [Concomitant]
     Active Substance: METOCLOPRAMIDE
     Indication: Prophylaxis of nausea and vomiting
     Dosage: 5 MG, AS NEEDED
     Route: 048
     Dates: start: 20200425, end: 20200425
  91. SOLDEM 3AG [Concomitant]
     Indication: Fluid replacement
     Dosage: 500 ML, SINGLE
     Route: 042
     Dates: start: 20200608, end: 20200608
  92. SOLDEM 3AG [Concomitant]
     Dosage: 500 ML, QD
     Route: 042
     Dates: start: 20200609, end: 20200610

REACTIONS (4)
  - Haemorrhoidal haemorrhage [Recovered/Resolved]
  - Haemorrhoidal haemorrhage [Recovered/Resolved]
  - Haemorrhoidal haemorrhage [Recovered/Resolved]
  - Haemorrhoidal haemorrhage [Recovered/Resolved]

NARRATIVE: CASE EVENT DATE: 20200327
